FAERS Safety Report 7181184-1 (Version None)
Quarter: 2010Q4

REPORT INFORMATION
  Report Type: 
  Country: None (occurrence: None)
  Receive Date: 20101221
  Receipt Date: 20101216
  Transmission Date: 20110411
  Serious: Yes (Other)
  Sender: FDA-Public Use
  Company Number: FR-PFIZER INC-2010173354

PATIENT
  Age: 80 Year
  Sex: Female
  Weight: 52 kg

DRUGS (10)
  1. EPLERENONE [Suspect]
     Dosage: 25 MG, 1X/DAY
     Dates: start: 20090605
  2. EPLERENONE [Suspect]
     Dosage: 12 MG, 1X/DAY
     Dates: start: 20091113
  3. EPLERENONE [Suspect]
     Dosage: 25 MG, 1X/DAY
     Dates: start: 20100212
  4. EPLERENONE [Suspect]
     Dosage: 12 MG, 1X/DAY
     Dates: start: 20100514
  5. FUROSEMIDE [Suspect]
  6. ACE INHIBITOR NOS [Concomitant]
     Dosage: UNK
     Dates: start: 20090528
  7. BETA BLOCKING AGENTS [Concomitant]
     Dosage: UNK
     Dates: start: 20090529
  8. DIURETICS [Concomitant]
     Dosage: UNK
     Dates: start: 20090527
  9. PLATELETS [Concomitant]
     Dosage: UNK
     Dates: start: 20090516
  10. STATINS [Concomitant]
     Dosage: UNK
     Dates: start: 20090605

REACTIONS (3)
  - CARDIAC FAILURE [None]
  - HAEMOGLOBINURIA [None]
  - HYPONATRAEMIA [None]
